FAERS Safety Report 9716231 (Version 1)
Quarter: 2013Q4

REPORT INFORMATION
  Report Type: Spontaneous
  Country: IT (occurrence: IT)
  Receive Date: 20131127
  Receipt Date: 20131127
  Transmission Date: 20140711
  Serious: Yes (Other)
  Sender: FDA-Public Use
  Company Number: IT-TEVA-444482ISR

PATIENT
  Age: 24 Year
  Sex: Male

DRUGS (2)
  1. IBUPROFENE [Suspect]
     Indication: PAIN
     Dosage: 1 DOSAGE FORMS DAILY;
     Route: 048
     Dates: start: 20131021, end: 20131022
  2. AMOXICILLINA TRIIDRATA/POTASSIO CLAVULANATO [Suspect]
     Indication: ANTIBIOTIC PROPHYLAXIS
     Dosage: 2 DOSAGE FORMS DAILY;
     Route: 048
     Dates: start: 20131021, end: 20131022

REACTIONS (3)
  - Dysphonia [Recovered/Resolved]
  - Palatal oedema [Recovered/Resolved]
  - Erythema [Recovered/Resolved]
